FAERS Safety Report 23023584 (Version 2)
Quarter: 2023Q4

REPORT INFORMATION
  Report Type: Spontaneous
  Country: US (occurrence: US)
  Receive Date: 20231003
  Receipt Date: 20231011
  Transmission Date: 20240110
  Serious: No
  Sender: FDA-Public Use
  Company Number: US-BRISTOL-MYERS SQUIBB COMPANY-2023-139628

PATIENT
  Age: 61 Year
  Sex: Female
  Weight: 141.07 kg

DRUGS (1)
  1. POMALYST [Suspect]
     Active Substance: POMALIDOMIDE
     Indication: Plasma cell myeloma
     Dosage: FREQUENCY-DAILY FOR  21 DAYS
     Route: 048
     Dates: end: 20230923

REACTIONS (3)
  - Product prescribing issue [Unknown]
  - Cough [Recovering/Resolving]
  - Illness [Recovering/Resolving]
